FAERS Safety Report 10910598 (Version 2)
Quarter: 2017Q1

REPORT INFORMATION
  Report Type: Spontaneous
  Country: US (occurrence: US)
  Receive Date: 20150312
  Receipt Date: 20170320
  Transmission Date: 20170428
  Serious: No
  Sender: FDA-Public Use
  Company Number: US-SA-2015SA001090

PATIENT
  Age: 66 Year
  Sex: Female

DRUGS (2)
  1. NASACORT ALLERGY 24HR [Suspect]
     Active Substance: TRIAMCINOLONE ACETONIDE
     Indication: RHINORRHOEA
     Dosage: 60 SPRAYS?FREQUENCY- ONCE ONE 31-DEC-2014
     Route: 048
     Dates: start: 20141231, end: 20141231
  2. NASACORT ALLERGY 24HR [Suspect]
     Active Substance: TRIAMCINOLONE ACETONIDE
     Indication: NASAL CONGESTION
     Dosage: 60 SPRAYS?FREQUENCY- ONCE ONE 31-DEC-2014
     Route: 048
     Dates: start: 20141231, end: 20141231

REACTIONS (2)
  - Nasal congestion [Unknown]
  - Product use issue [Unknown]

NARRATIVE: CASE EVENT DATE: 20141231
